FAERS Safety Report 6914785-3 (Version None)
Quarter: 2010Q3

REPORT INFORMATION
  Report Type: 
  Country: None (occurrence: None)
  Receive Date: 20100809
  Receipt Date: 20100802
  Transmission Date: 20110219
  Serious: Yes (Other)
  Sender: FDA-Public Use
  Company Number: JP-BRISTOL-MYERS SQUIBB COMPANY-15225725

PATIENT
  Sex: Male

DRUGS (3)
  1. CARBOPLATIN [Suspect]
     Indication: PROSTATE CANCER
     Dosage: 1 DF = AUC 3,DAY 1.
     Route: 041
  2. DOCETAXEL [Suspect]
     Indication: PROSTATE CANCER
     Dosage: INJ,DAY 1+8
     Route: 041
  3. ESTRAMUSTINE [Suspect]
     Indication: PROSTATE CANCER
     Dosage: CAPSULE, DAY 1.
     Route: 048

REACTIONS (1)
  - DISSEMINATED INTRAVASCULAR COAGULATION [None]
